FAERS Safety Report 12137255 (Version 1)
Quarter: 2016Q1

REPORT INFORMATION
  Report Type: Spontaneous
  Country: US (occurrence: US)
  Receive Date: 20160302
  Receipt Date: 20160302
  Transmission Date: 20160526
  Serious: Yes (Other)
  Sender: FDA-Public Use
  Company Number: US-INSYS THERAPEUTICS, INC-INS201511-000513

PATIENT
  Sex: Female

DRUGS (4)
  1. CLONAZEPAM. [Concomitant]
     Active Substance: CLONAZEPAM
  2. DURAGESIC [Concomitant]
     Active Substance: FENTANYL
  3. NORCO [Concomitant]
     Active Substance: ACETAMINOPHEN\HYDROCODONE BITARTRATE
  4. SUBSYS [Suspect]
     Active Substance: FENTANYL
     Indication: PAIN
     Dates: start: 20151029

REACTIONS (1)
  - Drug ineffective [Unknown]
